FAERS Safety Report 7914520-6 (Version None)
Quarter: 2011Q4

REPORT INFORMATION
  Report Type: 
  Country: None (occurrence: None)
  Receive Date: 20111115
  Receipt Date: 20111103
  Transmission Date: 20120403
  Serious: Yes (Hospitalization)
  Sender: FDA-Public Use
  Company Number: PHHY2011DE88935

PATIENT
  Sex: Female

DRUGS (7)
  1. MYFORTIC [Suspect]
     Indication: GLOMERULONEPHRITIS
     Dosage: 720 MG PER DAY
     Route: 048
     Dates: start: 20110914, end: 20111005
  2. ORAL CONTRACEPTIVE NOS [Concomitant]
  3. NOVAMINSULFON [Concomitant]
     Indication: PAIN
     Dosage: AS PER REAL NEED
     Route: 048
     Dates: start: 20100816
  4. PRAVASTATIN [Concomitant]
     Indication: HYPERCHOLESTEROLAEMIA
     Dosage: 40 MG, QD
     Route: 048
     Dates: start: 20100922
  5. ACE INHIBITORS [Concomitant]
  6. RAMIPRIL [Concomitant]
     Indication: HYPERTENSION
     Dosage: 2.5 MG, PER DAY
     Route: 048
     Dates: start: 20100922
  7. LEVOTHYROXINE SODIUM [Concomitant]
     Indication: HYPERTHYROIDISM
     Dosage: 75 UG, QD
     Route: 048
     Dates: start: 20090318

REACTIONS (10)
  - BLOOD ALKALINE PHOSPHATASE [None]
  - PRURITUS [None]
  - HEPATITIS [None]
  - ALANINE AMINOTRANSFERASE INCREASED [None]
  - GAMMA-GLUTAMYLTRANSFERASE INCREASED [None]
  - NAUSEA [None]
  - FAECES DISCOLOURED [None]
  - FATIGUE [None]
  - CHROMATURIA [None]
  - ASPARTATE AMINOTRANSFERASE INCREASED [None]
